FAERS Safety Report 23587203 (Version 2)
Quarter: 2024Q1

REPORT INFORMATION
  Report Type: Report from Study
  Country: US (occurrence: US)
  Receive Date: 20240301
  Receipt Date: 20240319
  Transmission Date: 20240410
  Serious: No
  Sender: FDA-Public Use
  Company Number: US-SANDOZ-SDZ2024US021788

PATIENT
  Age: 14 Year
  Sex: Female

DRUGS (2)
  1. OMNITROPE [Suspect]
     Active Substance: SOMATROPIN
     Indication: Small for dates baby
     Dosage: 1.8 MG, QD
     Route: 058
     Dates: start: 20240215
  2. OMNITROPE [Suspect]
     Active Substance: SOMATROPIN
     Indication: Small for dates baby
     Dosage: 1.8 MG, QD
     Route: 058
     Dates: start: 20240215

REACTIONS (2)
  - Laboratory test abnormal [Unknown]
  - Injection site pain [Unknown]

NARRATIVE: CASE EVENT DATE: 20240215
